FAERS Safety Report 14826291 (Version 1)
Quarter: 2018Q2

REPORT INFORMATION
  Report Type: Spontaneous
  Country: US (occurrence: US)
  Receive Date: 20180404
  Receipt Date: 20180404
  Transmission Date: 20180711
  Serious: Yes (Other)
  Sender: FDA-Public Use
  Company Number: None

PATIENT
  Age: 14 Month
  Sex: Female
  Weight: 13.05 kg

DRUGS (1)
  1. MIRALAX [Suspect]
     Active Substance: POLYETHYLENE GLYCOL 3350
     Indication: CONSTIPATION
     Route: 048

REACTIONS (6)
  - Muscle spasms [None]
  - Photophobia [None]
  - Rash [None]
  - Dysphagia [None]
  - Nervous system disorder [None]
  - Abnormal behaviour [None]

NARRATIVE: CASE EVENT DATE: 20161001
